FAERS Safety Report 10656074 (Version 1)
Quarter: 2014Q4

REPORT INFORMATION
  Report Type: Spontaneous
  Country: US (occurrence: US)
  Receive Date: 20141216
  Receipt Date: 20141216
  Transmission Date: 20150529
  Serious: Yes (Other)
  Sender: FDA-Public Use
  Company Number: US-BAYER-2014-184502

PATIENT
  Age: 32 Year
  Sex: Female

DRUGS (1)
  1. MIRENA [Suspect]
     Active Substance: LEVONORGESTREL
     Dosage: 20 MCG/24HR, CONT
     Route: 015
     Dates: start: 20071019, end: 20130118

REACTIONS (6)
  - Injury [None]
  - Uterine perforation [None]
  - Device difficult to use [None]
  - Pain [None]
  - Device dislocation [None]
  - Emotional distress [None]

NARRATIVE: CASE EVENT DATE: 20121217
